FAERS Safety Report 19209063 (Version 5)
Quarter: 2021Q3

REPORT INFORMATION
  Report Type: Report from Study
  Country: US (occurrence: US)
  Receive Date: 20210503
  Receipt Date: 20210908
  Transmission Date: 20211014
  Serious: Yes (Hospitalization, Other)
  Sender: FDA-Public Use
  Company Number: US-TAKEDA-2021TUS027356

PATIENT
  Age: 62 Year
  Sex: Female

DRUGS (12)
  1. TEDUGLUTIDE [Suspect]
     Active Substance: TEDUGLUTIDE
     Dosage: 1.81 MILLIGRAM, QD
     Route: 058
     Dates: start: 202107
  2. TEDUGLUTIDE [Suspect]
     Active Substance: TEDUGLUTIDE
     Indication: SHORT-BOWEL SYNDROME
     Dosage: 0.203 MILLIGRAM, QD
     Route: 058
     Dates: start: 20200924
  3. TEDUGLUTIDE [Suspect]
     Active Substance: TEDUGLUTIDE
     Dosage: 1.81 MILLIGRAM, QD
     Route: 058
     Dates: start: 202107
  4. TEDUGLUTIDE [Suspect]
     Active Substance: TEDUGLUTIDE
     Dosage: 1.81 MILLIGRAM, QD
     Route: 058
     Dates: start: 20200925
  5. TEDUGLUTIDE [Suspect]
     Active Substance: TEDUGLUTIDE
     Dosage: 1.81 MILLIGRAM, QD
     Route: 058
     Dates: start: 202107
  6. TEDUGLUTIDE [Suspect]
     Active Substance: TEDUGLUTIDE
     Dosage: 1.81 MILLIGRAM, QD
     Route: 058
     Dates: start: 202107
  7. TEDUGLUTIDE [Suspect]
     Active Substance: TEDUGLUTIDE
     Dosage: 1.81 MILLIGRAM, QD
     Route: 058
     Dates: start: 20200925
  8. TEDUGLUTIDE [Suspect]
     Active Substance: TEDUGLUTIDE
     Indication: SHORT-BOWEL SYNDROME
     Dosage: 0.203 MILLIGRAM, QD
     Route: 058
     Dates: start: 20200924
  9. TEDUGLUTIDE [Suspect]
     Active Substance: TEDUGLUTIDE
     Indication: SHORT-BOWEL SYNDROME
     Dosage: 0.203 MILLIGRAM, QD
     Route: 058
     Dates: start: 20200924
  10. TEDUGLUTIDE [Suspect]
     Active Substance: TEDUGLUTIDE
     Dosage: 1.81 MILLIGRAM, QD
     Route: 058
     Dates: start: 20200925
  11. TEDUGLUTIDE [Suspect]
     Active Substance: TEDUGLUTIDE
     Indication: SHORT-BOWEL SYNDROME
     Dosage: 0.203 MILLIGRAM, QD
     Route: 058
     Dates: start: 20200924
  12. TEDUGLUTIDE [Suspect]
     Active Substance: TEDUGLUTIDE
     Dosage: 1.81 MILLIGRAM, QD
     Route: 058
     Dates: start: 20200925

REACTIONS (8)
  - Renal disorder [Unknown]
  - Hospitalisation [Unknown]
  - Weight fluctuation [Unknown]
  - Product dose omission issue [Unknown]
  - Surgery [Recovering/Resolving]
  - Ileostomy closure [Unknown]
  - Fluid imbalance [Unknown]
  - Blood potassium abnormal [Unknown]

NARRATIVE: CASE EVENT DATE: 20210413
